FAERS Safety Report 4417089-6 (Version None)
Quarter: 2004Q3

REPORT INFORMATION
  Report Type: 
  Country: None (occurrence: None)
  Receive Date: 20040806
  Receipt Date: 20040728
  Transmission Date: 20050211
  Serious: Yes (Hospitalization)
  Sender: FDA-Public Use
  Company Number: US-AMGEN-US085201

PATIENT
  Sex: Female

DRUGS (2)
  1. NEULASTA [Suspect]
     Indication: CHEMOTHERAPY
     Dates: start: 20040326
  2. THALIDOMIDE [Concomitant]
     Dates: start: 20040301

REACTIONS (4)
  - COMA [None]
  - GRAND MAL CONVULSION [None]
  - HOT FLUSH [None]
  - VOMITING [None]
